FAERS Safety Report 4746428-1 (Version None)
Quarter: 2005Q3

REPORT INFORMATION
  Report Type: 
  Country: None (occurrence: None)
  Receive Date: 20050816
  Receipt Date: 20050816
  Transmission Date: 20060218
  Serious: No
  Sender: FDA-Public Use
  Company Number: None

PATIENT
  Sex: Female

DRUGS (2)
  1. PAXIL [Suspect]
     Dosage: 20 MG 40 MG DAILY
     Dates: start: 20050119
  2. . [Concomitant]

REACTIONS (1)
  - FEELING ABNORMAL [None]
